FAERS Safety Report 5479159-3 (Version None)
Quarter: 2007Q4

REPORT INFORMATION
  Report Type: 
  Country: None (occurrence: None)
  Receive Date: 20071008
  Receipt Date: 20071003
  Transmission Date: 20080405
  Serious: Yes (Life-Threatening)
  Sender: FDA-Public Use
  Company Number: PHBS2007PH14291

PATIENT
  Age: 50 Year
  Sex: Female
  Weight: 55 kg

DRUGS (5)
  1. LAMISIL [Suspect]
     Indication: ONYCHOMYCOSIS
     Dosage: 250 MG, UNK
     Route: 048
     Dates: start: 20070708
  2. CENTRUM [Concomitant]
     Route: 065
  3. NUTRICAP [Concomitant]
     Route: 065
  4. VITAMIN B COMPLEX CAP [Concomitant]
     Route: 065
  5. ASCORBIC ACID [Concomitant]
     Route: 065

REACTIONS (3)
  - HEADACHE [None]
  - HYPERTENSION [None]
  - SYNCOPE [None]
